FAERS Safety Report 21225778 (Version 3)
Quarter: 2022Q3

REPORT INFORMATION
  Report Type: Report from Study
  Country: DE (occurrence: DE)
  Receive Date: 20220818
  Receipt Date: 20220916
  Transmission Date: 20221027
  Serious: Yes (Other)
  Sender: FDA-Public Use
  Company Number: DE-ROCHE-3153764

PATIENT
  Age: 47 Year
  Sex: Female
  Weight: 91 kg

DRUGS (13)
  1. TRASTUZUMAB [Suspect]
     Active Substance: TRASTUZUMAB
     Indication: Breast cancer
     Dosage: 672 MILLIGRAM, (DATE AND DOSE OF LAST ADMINISTRATION PRIOR EVENT ON 21/JUL/2022 IS 546MG. FREQUENCY
     Route: 065
     Dates: start: 20220405
  2. TRASTUZUMAB [Suspect]
     Active Substance: TRASTUZUMAB
     Dosage: 549 MILLIGRAM, CYCLICAL
     Route: 065
     Dates: start: 20220630
  3. TRASTUZUMAB [Suspect]
     Active Substance: TRASTUZUMAB
     Dosage: 546 MILLIGRAM, CYCLICAL
     Route: 065
     Dates: start: 20220721
  4. PACLITAXEL [Suspect]
     Active Substance: PACLITAXEL
     Indication: Breast cancer
     Dosage: 162 MILLIGRAM, CYCLICAL
     Route: 065
     Dates: start: 20220405
  5. PACLITAXEL [Suspect]
     Active Substance: PACLITAXEL
     Dosage: 160 MILLIGRAM, CYCLICAL
     Route: 065
     Dates: start: 20220707
  6. PACLITAXEL [Suspect]
     Active Substance: PACLITAXEL
     Dosage: 162 MILLIGRAM, CYCLICAL
     Route: 065
     Dates: start: 20220721
  7. CARBOPLATIN [Suspect]
     Active Substance: CARBOPLATIN
     Indication: Breast cancer
     Dosage: 560 MILLIGRAM, CYCLICAL
     Route: 065
     Dates: start: 20220405
  8. CARBOPLATIN [Suspect]
     Active Substance: CARBOPLATIN
     Dosage: 690 MILLIGRAM, CYCLICAL
     Route: 065
     Dates: start: 20220721
  9. CARBOPLATIN [Suspect]
     Active Substance: CARBOPLATIN
     Dosage: 692.8 MILLIGRAM, CYCLICAL
     Route: 065
     Dates: start: 20220730
  10. PERTUZUMAB [Suspect]
     Active Substance: PERTUZUMAB
     Indication: Breast cancer
     Dosage: 840 MILLIGRAM
     Route: 065
     Dates: start: 20220405
  11. PERTUZUMAB [Suspect]
     Active Substance: PERTUZUMAB
     Dosage: 420 MILLIGRAM, CYCLICAL
     Route: 065
     Dates: start: 20220721
  12. PERTUZUMAB [Suspect]
     Active Substance: PERTUZUMAB
     Dosage: 420 MILLIGRAM, CYCLICAL
     Route: 065
     Dates: start: 20220730
  13. PEGFILGRASTIM [Concomitant]
     Active Substance: PEGFILGRASTIM
     Dosage: UNK
     Route: 065
     Dates: start: 20220729, end: 20220730

REACTIONS (3)
  - Polyneuropathy [Not Recovered/Not Resolved]
  - Neutropenia [Recovered/Resolved]
  - Anaemia [Not Recovered/Not Resolved]

NARRATIVE: CASE EVENT DATE: 20220701
